FAERS Safety Report 14541578 (Version 1)
Quarter: 2018Q1

REPORT INFORMATION
  Report Type: Spontaneous
  Country: FR (occurrence: FR)
  Receive Date: 20180216
  Receipt Date: 20180216
  Transmission Date: 20180509
  Serious: Yes (Hospitalization)
  Sender: FDA-Public Use
  Company Number: FR-OTSUKA-DJ20100352

PATIENT
  Age: 38 Year
  Sex: Female

DRUGS (9)
  1. NOZINAN [Suspect]
     Active Substance: LEVOMEPROMAZINE
     Indication: BIPOLAR I DISORDER
     Dosage: 100 MG, UNK
     Route: 048
     Dates: start: 200902
  2. NOZINAN [Suspect]
     Active Substance: LEVOMEPROMAZINE
     Dosage: UNK
     Route: 048
  3. LEPONEX [Suspect]
     Active Substance: CLOZAPINE
     Dosage: UNK
     Route: 048
  4. RIVOTRIL [Suspect]
     Active Substance: CLONAZEPAM
     Indication: BIPOLAR I DISORDER
  5. LEPONEX [Suspect]
     Active Substance: CLOZAPINE
     Indication: BIPOLAR I DISORDER
     Dosage: 300 MG, UNK
     Route: 048
     Dates: start: 20070214
  6. CYMBALTA [Suspect]
     Active Substance: DULOXETINE HYDROCHLORIDE
     Indication: BIPOLAR I DISORDER
     Dosage: 60 MG, UNK
     Route: 048
     Dates: start: 200902
  7. ABILIFY [Suspect]
     Active Substance: ARIPIPRAZOLE
     Indication: BIPOLAR I DISORDER
     Dosage: 30 MG, UNK
     Route: 048
     Dates: start: 200902
  8. RIVOTRIL [Suspect]
     Active Substance: CLONAZEPAM
     Indication: BIPOLAR I DISORDER
     Dosage: 2 MG, QD
     Route: 048
  9. ATARAX [Suspect]
     Active Substance: HYDROXYZINE HYDROCHLORIDE
     Indication: BIPOLAR I DISORDER
     Dosage: 75 MG, UNK
     Route: 048

REACTIONS (3)
  - Multiple fractures [Unknown]
  - Epilepsy [Recovered/Resolved with Sequelae]
  - Fall [Unknown]

NARRATIVE: CASE EVENT DATE: 20090712
